FAERS Safety Report 22203029 (Version 8)
Quarter: 2025Q1

REPORT INFORMATION
  Report Type: Spontaneous
  Country: US (occurrence: US)
  Receive Date: 20230412
  Receipt Date: 20250306
  Transmission Date: 20250409
  Serious: Yes (Other)
  Sender: PFIZER
  Company Number: US-PFIZER INC-PV202300063761

PATIENT
  Age: 66 Year
  Sex: Female

DRUGS (13)
  1. IBRANCE [Suspect]
     Active Substance: PALBOCICLIB
     Indication: Hormone receptor positive HER2 negative breast cancer
     Dates: start: 202006
  2. IBRANCE [Suspect]
     Active Substance: PALBOCICLIB
     Dates: start: 20200711
  3. IBRANCE [Suspect]
     Active Substance: PALBOCICLIB
     Dates: start: 20201108
  4. IBRANCE [Suspect]
     Active Substance: PALBOCICLIB
     Dates: start: 2021
  5. IBRANCE [Suspect]
     Active Substance: PALBOCICLIB
     Dates: start: 2022
  6. IBRANCE [Suspect]
     Active Substance: PALBOCICLIB
     Route: 048
     Dates: start: 2024
  7. IBRANCE [Suspect]
     Active Substance: PALBOCICLIB
     Dates: end: 202412
  8. FEMARA [Suspect]
     Active Substance: LETROZOLE
     Indication: Hormone receptor positive breast cancer
     Dates: start: 202006
  9. FEMARA [Suspect]
     Active Substance: LETROZOLE
     Indication: Metastases to lung
     Dates: start: 20200711
  10. FEMARA [Suspect]
     Active Substance: LETROZOLE
     Dates: start: 20201108
  11. FEMARA [Suspect]
     Active Substance: LETROZOLE
     Dates: start: 2021
  12. FEMARA [Suspect]
     Active Substance: LETROZOLE
     Dates: start: 2022
  13. FEMARA [Suspect]
     Active Substance: LETROZOLE
     Dates: start: 2024

REACTIONS (17)
  - Breast cancer recurrent [Unknown]
  - Myalgia [Unknown]
  - Vitamin D decreased [Unknown]
  - Pruritus [Recovered/Resolved]
  - Blister [Unknown]
  - Ear pruritus [Unknown]
  - Hot flush [Unknown]
  - Abdominal hernia [Unknown]
  - Pain in extremity [Recovered/Resolved]
  - Swelling [Unknown]
  - Osteopenia [Unknown]
  - Acne [Unknown]
  - Central obesity [Unknown]
  - Abdominal distension [Unknown]
  - Rash [Recovered/Resolved]
  - COVID-19 [Unknown]
  - Alopecia [Unknown]

NARRATIVE: CASE EVENT DATE: 20200722
